FAERS Safety Report 9337974 (Version 1)
Quarter: 2013Q2

REPORT INFORMATION
  Report Type: Report from Study
  Country: AU (occurrence: AU)
  Receive Date: 20130609
  Receipt Date: 20130609
  Transmission Date: 20140414
  Serious: Yes (Other)
  Sender: FDA-Public Use
  Company Number: PHHY2013AU051653

PATIENT
  Age: 73 Year
  Sex: Female

DRUGS (2)
  1. ACLASTA [Suspect]
     Indication: OSTEOPOROSIS
     Dosage: 5 MG
     Route: 042
     Dates: start: 20120502
  2. DILTIAZEM [Concomitant]
     Indication: PULMONARY HYPERTENSION

REACTIONS (5)
  - Sinus tachycardia [Unknown]
  - Tachycardia [Recovered/Resolved]
  - Palpitations [Unknown]
  - Bundle branch block right [Unknown]
  - Hypertension [Recovered/Resolved]
